FAERS Safety Report 8037861-3 (Version None)
Quarter: 2012Q1

REPORT INFORMATION
  Report Type: 
  Country: None (occurrence: None)
  Receive Date: 20120111
  Receipt Date: 20110929
  Transmission Date: 20120608
  Serious: Yes (Other)
  Sender: FDA-Public Use
  Company Number: PHHY2011GB79952

PATIENT
  Age: 9 Year
  Sex: Female

DRUGS (6)
  1. CYCLOSPORINE [Suspect]
     Indication: WEGENER'S GRANULOMATOSIS
  2. MYCOPHENOLATE MOFETIL [Concomitant]
     Indication: IMMUNOSUPPRESSION
  3. PREDNISOLONE [Suspect]
     Indication: WEGENER'S GRANULOMATOSIS
     Dosage: 1 MG/KG (UP TO 60 MG)
     Route: 048
  4. STEROIDS NOS [Concomitant]
     Indication: IMMUNOSUPPRESSION
  5. CYCLOPHOSPHAMIDE [Concomitant]
     Route: 048
  6. CYCLOPHOSPHAMIDE [Concomitant]
     Route: 042

REACTIONS (12)
  - CUSHING'S SYNDROME [None]
  - LARYNGEAL STENOSIS [None]
  - OSTEOPOROSIS [None]
  - INFERTILITY [None]
  - BREAST CANCER [None]
  - WEGENER'S GRANULOMATOSIS [None]
  - HEARING IMPAIRED [None]
  - HIRSUTISM [None]
  - URINARY TRACT INFECTION [None]
  - PARONYCHIA [None]
  - HERPES ZOSTER [None]
  - OSTEONECROSIS [None]
